FAERS Safety Report 9118281 (Version 1)
Quarter: 2013Q1

REPORT INFORMATION
  Report Type: Spontaneous
  Country: US (occurrence: None)
  Receive Date: 20130221
  Receipt Date: 20130221
  Transmission Date: 20140127
  Serious: Yes (Other)
  Sender: FDA-Public Use
  Company Number: None

PATIENT
  Age: 55 Year
  Sex: Male
  Weight: 99.79 kg

DRUGS (1)
  1. TOPIRAMATE [Suspect]
     Dosage: UP  TO 2 TAB/DAY AT BEDTIME ORAL
     Route: 048
     Dates: start: 20120820

REACTIONS (1)
  - Iritis [None]
